FAERS Safety Report 23298835 (Version 1)
Quarter: 2023Q4

REPORT INFORMATION
  Report Type: Spontaneous
  Country: CN (occurrence: CN)
  Receive Date: 20231215
  Receipt Date: 20231215
  Transmission Date: 20240110
  Serious: Yes (Other)
  Sender: FDA-Public Use
  Company Number: CN-ELI_LILLY_AND_COMPANY-CN202312004810

PATIENT
  Age: 36 Year
  Sex: Male

DRUGS (9)
  1. ALIMTA [Suspect]
     Active Substance: PEMETREXED DISODIUM
     Indication: Lung neoplasm malignant
     Dosage: 0.9 G, UNKNOWN
     Route: 041
     Dates: start: 20231123
  2. ALIMTA [Suspect]
     Active Substance: PEMETREXED DISODIUM
     Indication: Lung carcinoma cell type unspecified recurrent
  3. ALIMTA [Suspect]
     Active Substance: PEMETREXED DISODIUM
     Indication: Metastases to pleura
  4. AVASTIN [Concomitant]
     Active Substance: BEVACIZUMAB
     Indication: Lung neoplasm malignant
     Dosage: 500 MG
     Route: 041
     Dates: start: 20231124
  5. AVASTIN [Concomitant]
     Active Substance: BEVACIZUMAB
     Indication: Lung carcinoma cell type unspecified recurrent
  6. AVASTIN [Concomitant]
     Active Substance: BEVACIZUMAB
     Indication: Metastases to pleura
  7. CISPLATIN [Concomitant]
     Active Substance: CISPLATIN
     Indication: Lung neoplasm malignant
     Dosage: 70 MG
     Route: 041
     Dates: start: 20231123
  8. CISPLATIN [Concomitant]
     Active Substance: CISPLATIN
     Indication: Lung carcinoma cell type unspecified recurrent
  9. CISPLATIN [Concomitant]
     Active Substance: CISPLATIN
     Indication: Metastases to pleura

REACTIONS (4)
  - Drug-induced liver injury [Recovering/Resolving]
  - Fatigue [Recovering/Resolving]
  - Nausea [Recovering/Resolving]
  - Decreased appetite [Recovering/Resolving]

NARRATIVE: CASE EVENT DATE: 20231126
